FAERS Safety Report 9502242 (Version 8)
Quarter: 2015Q1

REPORT INFORMATION
  Report Type: Report from Study
  Country: CA (occurrence: CA)
  Receive Date: 20130906
  Receipt Date: 20150312
  Transmission Date: 20150721
  Serious: Yes (Life-Threatening, Hospitalization)
  Sender: FDA-Public Use
  Company Number: CA-ROCHE-1256346

PATIENT
  Age: 37 Year
  Sex: Female
  Weight: 52 kg

DRUGS (4)
  1. METHOTREXATE [Suspect]
     Active Substance: METHOTREXATE
     Indication: PRODUCT USED FOR UNKNOWN INDICATION
     Route: 065
     Dates: start: 20090703, end: 20100627
  2. ORENCIA [Suspect]
     Active Substance: ABATACEPT
     Indication: PRODUCT USED FOR UNKNOWN INDICATION
     Route: 065
     Dates: start: 20090101, end: 20130305
  3. ACTEMRA [Suspect]
     Active Substance: TOCILIZUMAB
     Indication: RHEUMATOID ARTHRITIS
     Route: 042
     Dates: start: 20130508
  4. PREDNISONE. [Concomitant]
     Active Substance: PREDNISONE
     Dosage: AS REQUIRED
     Route: 065

REACTIONS (7)
  - Influenza like illness [Not Recovered/Not Resolved]
  - Cough [Not Recovered/Not Resolved]
  - Weight decreased [Unknown]
  - Rheumatoid lung [Unknown]
  - Respiratory disorder [Recovering/Resolving]
  - Blood potassium decreased [Unknown]
  - Pneumonia [Unknown]

NARRATIVE: CASE EVENT DATE: 2013
